FAERS Safety Report 6896957-X (Version None)
Quarter: 2010Q3

REPORT INFORMATION
  Report Type: 
  Country: None (occurrence: None)
  Receive Date: 20100802
  Receipt Date: 20070312
  Transmission Date: 20110219
  Serious: No
  Sender: FDA-Public Use
  Company Number: US-PFIZER INC-2007020789

PATIENT
  Sex: Male
  Weight: 83 kg

DRUGS (10)
  1. LYRICA [Suspect]
     Indication: HERPES ZOSTER
     Dates: start: 20070112
  2. LIPITOR [Concomitant]
     Dates: start: 19970101
  3. ACCUPRIL [Concomitant]
     Dates: start: 19970101
  4. ACETYLSALICYLIC ACID SRT [Concomitant]
     Dates: start: 19970101
  5. DRUG USED IN DIABETES [Concomitant]
     Dates: start: 19970101
  6. PYRIDOXINE HYDROCHLORIDE [Concomitant]
     Dates: start: 19970101
  7. CYANOCOBALAMIN [Concomitant]
     Dates: start: 19970101
  8. FOLIC ACID [Concomitant]
     Dates: start: 19970101
  9. UBIDECARENONE [Concomitant]
     Dates: start: 19970101
  10. ASCORBIC ACID [Concomitant]
     Dates: start: 19970101

REACTIONS (1)
  - JOINT SWELLING [None]
